FAERS Safety Report 23321002 (Version 1)
Quarter: 2023Q4

REPORT INFORMATION
  Report Type: Spontaneous
  Country: HR (occurrence: HR)
  Receive Date: 20231220
  Receipt Date: 20231220
  Transmission Date: 20240110
  Serious: Yes (Other)
  Sender: FDA-Public Use
  Company Number: None

PATIENT
  Sex: Male

DRUGS (3)
  1. XANAX [Suspect]
     Active Substance: ALPRAZOLAM
     Indication: Product used for unknown indication
     Dosage: 1 DOSAGE FORM, QD (HE TOOK 1 TABLET)
     Route: 048
     Dates: start: 20231014, end: 20231014
  2. ALPRAZOLAM [Suspect]
     Active Substance: ALPRAZOLAM
     Indication: Product used for unknown indication
     Dosage: 1 DOSAGE FORM, QD (HE TOOK 1 TABLET)
     Route: 048
     Dates: start: 20231014, end: 20231014
  3. QUETIAPINE [Suspect]
     Active Substance: QUETIAPINE
     Indication: Product used for unknown indication
     Dosage: 2 DOSAGE FORM, QD (HE TOOK 2 TABLETS)
     Route: 048
     Dates: start: 20231014, end: 20231014

REACTIONS (3)
  - Suicide attempt [Unknown]
  - Slow speech [Unknown]
  - Somnolence [Unknown]

NARRATIVE: CASE EVENT DATE: 20231014
